FAERS Safety Report 6327880-7 (Version None)
Quarter: 2009Q3

REPORT INFORMATION
  Report Type: 
  Country: None (occurrence: None)
  Receive Date: 20090824
  Receipt Date: 20090820
  Transmission Date: 20100115
  Serious: Yes (Disabling)
  Sender: FDA-Public Use
  Company Number: 20090013USST

PATIENT
  Age: 66 Year
  Sex: Female

DRUGS (5)
  1. LEVOCARNIL ORAL SOLUTION (LEVOCARNITINE) [Suspect]
     Indication: FIBROMYALGIA
     Dosage: 100 MG PO
     Route: 048
  2. EZETIMIBE [Concomitant]
  3. CHONDROSULT (CHONDROITINE SULPHATE) [Concomitant]
  4. MAGNE B6 (MAGNESIUM LACTATE, PYRIDOXINE) [Concomitant]
  5. IDEOS (CALCIUM, CHOLECALCIFEROL) [Concomitant]

REACTIONS (2)
  - CHEST DISCOMFORT [None]
  - RESPIRATORY DISORDER [None]
